FAERS Safety Report 5858411-3 (Version None)
Quarter: 2008Q3

REPORT INFORMATION
  Report Type: 
  Country: None (occurrence: None)
  Receive Date: 20080826
  Receipt Date: 20080818
  Transmission Date: 20090109
  Serious: Yes (Other)
  Sender: FDA-Public Use
  Company Number: US-ROCHE-581577

PATIENT
  Age: 49 Year
  Sex: Male

DRUGS (11)
  1. FUZEON [Suspect]
     Indication: HIV INFECTION
     Dosage: STARTED AS PART OF NEW HAART REGIMEN.
     Route: 065
  2. RITUXIMAB [Suspect]
     Indication: CASTLEMAN'S DISEASE
     Dosage: 6 CYCLES. GIVEN IN COMBINATION WITH CHOP.
     Route: 065
  3. VIREAD [Suspect]
     Indication: HIV INFECTION
     Dosage: STARTED AS PART OF NEW HAART REGIMEN.
     Route: 065
  4. EPIVIR [Suspect]
     Dosage: STARTED AS PART OF NEW HAART REGIMEN.
     Route: 065
  5. VIDEX [Suspect]
     Indication: HIV INFECTION
     Dosage: STARTED AS PART OF NEW HAART REGIMEN.
     Route: 065
  6. 1 SUSPECTED DRUG [Suspect]
     Indication: HIV INFECTION
     Dosage: DRUG NAME REPORTED AS: ^VISODEX^. STARTED AS PART OF NEW HAART REGIMEN.
     Route: 065
  7. CYCLOPHOSPHAMIDE [Suspect]
     Indication: CASTLEMAN'S DISEASE
     Dosage: GIVEN DAILY FOR FIVE DAYS EVERY 21 DAYS FOR 6 CYCLES. PART OF CHOP.
     Route: 065
  8. DOXORUBICIN HCL [Suspect]
     Indication: CASTLEMAN'S DISEASE
     Dosage: GIVEN DAILY FOR FIVE DAYS EVERY 21 DAYS FOR 6 CYCLES. PART OF CHOP.
     Route: 065
  9. VINCRISTINE [Suspect]
     Indication: CASTLEMAN'S DISEASE
     Dosage: MAXIMUM DAILY DOSE OF 2MG. GIVEN DAILY FOR FIVE DAYS EVERY 21 DAYS FOR 6 CYCLES. PART OF CHOP.
     Route: 065
  10. PREDNISONE TAB [Suspect]
     Indication: CASTLEMAN'S DISEASE
     Dosage: GIVEN DAILY FOR FIVE DAYS EVERY 21 DAYS FOR 6 CYCLES. PART OF CHOP.
     Route: 065
  11. ANTIRETROVIRAL NOS [Concomitant]
     Indication: HIV INFECTION
     Dosage: A COMMUNITY PHYSICIAN TREATED THE PATIENT WITH HAART. COMPONENT ANTIVIRALS UNKNOWN.

REACTIONS (2)
  - CASTLEMAN'S DISEASE [None]
  - FEBRILE NEUTROPENIA [None]
